FAERS Safety Report 10142682 (Version 1)
Quarter: 2014Q2

REPORT INFORMATION
  Report Type: Spontaneous
  Country: US (occurrence: None)
  Receive Date: 20140425
  Receipt Date: 20140425
  Transmission Date: 20141212
  Serious: Yes (Other)
  Sender: FDA-Public Use
  Company Number: AUR-APL-2014-04739

PATIENT
  Age: 78 Year
  Sex: Male

DRUGS (6)
  1. HYDROCHLOROTHIAZIDE (HYDROCHLOROTHIAZIDE) [Suspect]
     Indication: HYPERTENSION
     Dosage: (25 MG,1 D)
  2. AMLODIPINE+BENAZEPRIL [Suspect]
     Indication: HYPERTENSION
  3. SPIRONOLACTONE (SPIRONOLACTONE) [Suspect]
     Indication: HYPERTENSION
  4. ALISKIREN [Suspect]
     Indication: HYPERTENSION
     Dosage: (150 MG,1 D)
  5. ROSUVASTATIN (ROSUVASTATIN) [Concomitant]
  6. CARVEDILOL (CARVEDILOL) [Concomitant]

REACTIONS (8)
  - Renal failure acute [None]
  - Dyspnoea [None]
  - Bradycardia [None]
  - Hypotension [None]
  - Rales [None]
  - Haemodialysis [None]
  - Blood pressure inadequately controlled [None]
  - Defect conduction intraventricular [None]
